FAERS Safety Report 10235814 (Version 1)
Quarter: 2014Q2

REPORT INFORMATION
  Report Type: Spontaneous
  Country: US (occurrence: US)
  Receive Date: 20140613
  Receipt Date: 20140613
  Transmission Date: 20141212
  Serious: No
  Sender: FDA-Public Use
  Company Number: US-BAYER-2014-088855

PATIENT
  Sex: Female

DRUGS (2)
  1. ALEVE CAPLET [Suspect]
     Indication: MIGRAINE
     Dosage: UNK
  2. ALEVE CAPLET [Suspect]
     Indication: PAIN IN EXTREMITY

REACTIONS (2)
  - Intentional product misuse [Unknown]
  - Therapeutic response changed [Unknown]
